FAERS Safety Report 10204867 (Version 1)
Quarter: 2014Q2

REPORT INFORMATION
  Report Type: Spontaneous
  Country: US (occurrence: None)
  Receive Date: 20140527
  Receipt Date: 20140527
  Transmission Date: 20141212
  Serious: Yes (Life-Threatening, Hospitalization)
  Sender: FDA-Public Use
  Company Number: None

PATIENT
  Age: 59 Year
  Sex: Female
  Weight: 49.9 kg

DRUGS (1)
  1. EXCEDRIN ES [Suspect]
     Indication: MIGRAINE
     Dosage: 2 PILLS, TWICE DAILY, TAKEN BY MOUTH
     Route: 048

REACTIONS (3)
  - Dyspnoea [None]
  - Asthenia [None]
  - Haematochezia [None]
